FAERS Safety Report 7202268-5 (Version None)
Quarter: 2010Q4

REPORT INFORMATION
  Report Type: 
  Country: None (occurrence: None)
  Receive Date: 20101229
  Receipt Date: 20101222
  Transmission Date: 20110411
  Serious: Yes (Hospitalization)
  Sender: FDA-Public Use
  Company Number: JP-B.I. PHARMACEUTICALS,INC./RIDGEFIELD-2010-DE-07008GD

PATIENT
  Age: 78 Year
  Sex: Female

DRUGS (1)
  1. MELOXICAM [Suspect]
     Indication: OSTEOARTHRITIS

REACTIONS (4)
  - ANAEMIA [None]
  - GASTRITIS EROSIVE [None]
  - HAEMATOCHEZIA [None]
  - ILEAL ULCER [None]
